FAERS Safety Report 9370770 (Version 2)
Quarter: 2013Q3

REPORT INFORMATION
  Report Type: Spontaneous
  Country: ZA (occurrence: ZA)
  Receive Date: 20130626
  Receipt Date: 20130708
  Transmission Date: 20140515
  Serious: Yes (Hospitalization, Other)
  Sender: FDA-Public Use
  Company Number: ZA-ASTRAZENECA-2013SE47300

PATIENT
  Age: 52 Year
  Sex: Female

DRUGS (1)
  1. NEXIAM [Suspect]
     Route: 048

REACTIONS (2)
  - Hypersensitivity [Recovered/Resolved]
  - Erythema multiforme [Recovered/Resolved]
